FAERS Safety Report 17530713 (Version 1)
Quarter: 2020Q1

REPORT INFORMATION
  Report Type: Spontaneous
  Country: FR (occurrence: FR)
  Receive Date: 20200312
  Receipt Date: 20200312
  Transmission Date: 20200409
  Serious: Yes (Other)
  Sender: FDA-Public Use
  Company Number: FR-TEVA-2020-FR-1199800

PATIENT
  Age: 27 Year
  Sex: Female

DRUGS (3)
  1. INTRAUTERINE DEVICE (IUD) IN COPPER [Interacting]
     Active Substance: COPPER
     Route: 015
  2. DOLIPRANE [Concomitant]
     Active Substance: ACETAMINOPHEN
     Indication: TONSILLITIS
  3. AMOXICILLINE/ACIDE CLAVULANIQUE TEVA 1G/125MG ADULTES [Suspect]
     Active Substance: AMOXICILLIN\CLAVULANIC ACID
     Indication: TONSILLITIS
     Dosage: 6 DOSAGE FORMS DAILY; 500 MG/62.5 MG, IN THE MORNING, AT NOON AND IN THE EVENING FOR 10 DAYS
     Route: 065
     Dates: start: 20200303, end: 20200305

REACTIONS (6)
  - Epistaxis [Recovered/Resolved]
  - Vaginal haemorrhage [Recovered/Resolved]
  - Product use in unapproved indication [Unknown]
  - Product prescribing error [Unknown]
  - Drug interaction [Recovered/Resolved]
  - Thrombosis [Recovered/Resolved]

NARRATIVE: CASE EVENT DATE: 202003
